FAERS Safety Report 4606531-3 (Version None)
Quarter: 2005Q2

REPORT INFORMATION
  Report Type: 
  Country: None (occurrence: None)
  Receive Date: 20050223
  Receipt Date: 20040920
  Transmission Date: 20051028
  Serious: Yes (Hospitalization, Other)
  Sender: FDA-Public Use
  Company Number: WAES 0409USA01706

PATIENT
  Age: 55 Year
  Sex: Female
  Weight: 66.6788 kg

DRUGS (2)
  1. ZOCOR [Suspect]
     Indication: BLOOD CHOLESTEROL INCREASED
     Dosage: 10 MG/DAILY/PO
     Route: 048
     Dates: start: 20020201, end: 20040901
  2. CELEBREX [Concomitant]

REACTIONS (1)
  - PANCREATITIS ACUTE [None]
